FAERS Safety Report 6546268-7 (Version None)
Quarter: 2010Q1

REPORT INFORMATION
  Report Type: 
  Country: None (occurrence: None)
  Receive Date: 20100122
  Receipt Date: 20100119
  Transmission Date: 20100710
  Serious: Yes (Death, Hospitalization)
  Sender: FDA-Public Use
  Company Number: AU-BRISTOL-MYERS SQUIBB COMPANY-14939839

PATIENT
  Age: 82 Year
  Sex: Male
  Weight: 74 kg

DRUGS (11)
  1. CISPLATIN [Suspect]
     Indication: NON-SMALL CELL LUNG CANCER
     Route: 042
     Dates: start: 20091216, end: 20091216
  2. ALIMTA [Suspect]
     Indication: NON-SMALL CELL LUNG CANCER
     Route: 042
     Dates: start: 20091216, end: 20091216
  3. INSULIN [Concomitant]
     Indication: TYPE 2 DIABETES MELLITUS
  4. SPIRIVA [Concomitant]
     Indication: COUGH
     Dates: start: 20091120
  5. LIPITOR [Concomitant]
     Indication: HYPERCHOLESTEROLAEMIA
  6. PERINDOPRIL [Concomitant]
     Indication: MYOCARDIAL INFARCTION
     Dosage: PERINDOPRIL GARGININE
  7. ASPIRIN [Concomitant]
     Indication: MYOCARDIAL INFARCTION
  8. ASPIRIN [Concomitant]
     Indication: HYPERTENSION
  9. FOLIC ACID [Concomitant]
     Dosage: ONGOING
     Dates: start: 20091204, end: 20091201
  10. VITAMIN B-12 [Concomitant]
     Dates: start: 20091204, end: 20091201
  11. DEXAMETHASONE [Concomitant]
     Dates: start: 20091215, end: 20091217

REACTIONS (11)
  - ACUTE MYOCARDIAL INFARCTION [None]
  - ANGINA UNSTABLE [None]
  - CARDIAC ARREST [None]
  - CARDIAC FAILURE [None]
  - CARDIO-RESPIRATORY ARREST [None]
  - DEHYDRATION [None]
  - FALSE POSITIVE LABORATORY RESULT [None]
  - NAUSEA [None]
  - RENAL FAILURE [None]
  - SEPSIS [None]
  - VOMITING [None]
